FAERS Safety Report 6290602-2 (Version None)
Quarter: 2009Q3

REPORT INFORMATION
  Report Type: 
  Country: None (occurrence: None)
  Receive Date: 20090728
  Receipt Date: 20090728
  Transmission Date: 20100115
  Serious: Yes (Other)
  Sender: FDA-Public Use
  Company Number: None

PATIENT
  Sex: Male
  Weight: 96.1626 kg

DRUGS (1)
  1. ORLISTAT 120 MG UNKNOWN [Suspect]
     Indication: OBESITY
     Dosage: 120 MG TID PO
     Route: 048

REACTIONS (6)
  - ABDOMINAL DISTENSION [None]
  - ALANINE AMINOTRANSFERASE INCREASED [None]
  - ASPARTATE AMINOTRANSFERASE INCREASED [None]
  - DYSPEPSIA [None]
  - NAUSEA [None]
  - OEDEMA PERIPHERAL [None]
